FAERS Safety Report 9675682 (Version 2)
Quarter: 2013Q4

REPORT INFORMATION
  Report Type: Spontaneous
  Country: US (occurrence: US)
  Receive Date: 20131107
  Receipt Date: 20131119
  Transmission Date: 20140711
  Serious: Yes (Other)
  Sender: FDA-Public Use
  Company Number: US-JHP PHARMACEUTICALS, LLC-JHP201300666

PATIENT
  Sex: 0

DRUGS (1)
  1. ADRENALIN [Suspect]
     Indication: HAEMOSTASIS
     Dosage: INFILTRATION USING INFUSION PUMP
     Route: 050

REACTIONS (2)
  - Acute pulmonary oedema [Recovered/Resolved]
  - Drug administration error [Recovered/Resolved]
